FAERS Safety Report 11257964 (Version 1)
Quarter: 2015Q3

REPORT INFORMATION
  Report Type: Spontaneous
  Country: US (occurrence: None)
  Receive Date: 20150708
  Receipt Date: 20150708
  Transmission Date: 20151125
  Serious: No
  Sender: FDA-Public Use
  Company Number: 1210513-2015-00146

PATIENT
  Age: 54 Year
  Sex: Female

DRUGS (2)
  1. FAMILY DOLLAR TRIPLE ANITIBIOTIC (SHEFFIELD) [Suspect]
     Active Substance: BACITRACIN ZINC\NEOMYCIN SULFATE\POLYMYXIN B SULFATE
     Indication: ANTIBIOTIC THERAPY
     Dosage: 2TO3X/DAY
     Route: 061
     Dates: start: 20150507, end: 20150511
  2. FAMILY DOLLAR TRIPLE ANITIBIOTIC (SHEFFIELD) [Suspect]
     Active Substance: BACITRACIN ZINC\NEOMYCIN SULFATE\POLYMYXIN B SULFATE
     Indication: THERAPEUTIC SKIN CARE TOPICAL
     Dosage: 2TO3X/DAY
     Route: 061
     Dates: start: 20150507, end: 20150511

REACTIONS (4)
  - Swelling face [None]
  - Sleep disorder [None]
  - Pain [None]
  - Rash [None]

NARRATIVE: CASE EVENT DATE: 20150511
